FAERS Safety Report 8238123-1 (Version None)
Quarter: 2012Q1

REPORT INFORMATION
  Report Type: 
  Country: None (occurrence: None)
  Receive Date: 20120309
  Receipt Date: 20101213
  Transmission Date: 20120608
  Serious: Yes (Other)
  Sender: FDA-Public Use
  Company Number: PHHY2010US79631

PATIENT
  Age: 49 Year
  Sex: Female
  Weight: 66.7 kg

DRUGS (6)
  1. CALCIUM WITH VITAMIN D (CALCIUM PHOSPHATE, CALCIUM SODIUM LACTATE, ERG [Concomitant]
  2. EXTAVIA [Suspect]
     Indication: MULTIPLE SCLEROSIS
     Dosage: 0.25 MG, QOD, SUBCUTANEOUS
     Route: 058
     Dates: start: 20100906, end: 20101202
  3. ARICEPT (DONEPZEL HYDROCHLORIDE) [Concomitant]
  4. NICOTINE [Concomitant]
  5. DEPAKOTE [Concomitant]
  6. FLURBIPROFEN [Concomitant]

REACTIONS (6)
  - INJECTION SITE ERYTHEMA [None]
  - INJECTION SITE SWELLING [None]
  - INJECTION SITE MASS [None]
  - INJECTION SITE HAEMATOMA [None]
  - INJECTION SITE PAIN [None]
  - INJECTION SITE ULCER [None]
